FAERS Safety Report 6466923-7 (Version None)
Quarter: 2009Q4

REPORT INFORMATION
  Report Type: 
  Country: None (occurrence: None)
  Receive Date: 20091202
  Receipt Date: 20091201
  Transmission Date: 20100525
  Serious: Yes (Other)
  Sender: FDA-Public Use
  Company Number: US-PFIZER INC-2009264649

PATIENT
  Sex: Male
  Weight: 87.075 kg

DRUGS (10)
  1. NEURONTIN [Suspect]
     Indication: FIBROMYALGIA
     Dosage: 300 MG, ON AN INCREASING DOSE EVERY 3 DAYS
     Route: 048
     Dates: start: 20090825
  2. OXYMORPHONE [Suspect]
     Indication: PAIN
     Dosage: 30 MG, 2X/DAY
     Route: 048
     Dates: start: 20090812, end: 20090823
  3. OXYMORPHONE [Suspect]
     Dosage: 30 MG, 2 IN THE MORNING, 1 AT MID DAY, 2 AT NIGHT
     Route: 048
     Dates: start: 20090824, end: 20090825
  4. OXYMORPHONE [Suspect]
     Dosage: 40 MG, 2X/DAY
     Route: 048
     Dates: start: 20090825, end: 20090827
  5. OXYCODONE HCL AND ACETAMINOPHEN [Suspect]
     Indication: BREAKTHROUGH PAIN
     Dosage: 10 MG/ 325 MG, 1-2 TABS THREE TIMES A DAY
     Route: 048
     Dates: start: 19960101, end: 20090827
  6. OXYCODONE HCL AND ACETAMINOPHEN [Suspect]
     Dosage: 10 MG/325 MG, 10 TABLETS DAILY PRN
     Route: 048
     Dates: start: 19960101
  7. AMBIEN [Suspect]
     Dosage: 10 MG, AT NIGHT
     Route: 048
     Dates: start: 19990101
  8. SINGLET ^SMITH KLINE BEECHAM^ [Suspect]
     Indication: SEASONAL ALLERGY
     Dosage: UNK
     Route: 048
     Dates: start: 19990101
  9. KLONOPIN [Suspect]
     Dosage: 1 MG, 3X/DAY
     Route: 048
     Dates: start: 20040101
  10. ZANAFLEX [Suspect]
     Indication: FIBROMYALGIA
     Dosage: 4 MG, 2X/DAY
     Route: 048
     Dates: start: 19960101

REACTIONS (14)
  - ANGER [None]
  - CONFUSIONAL STATE [None]
  - CONTUSION [None]
  - DEPRESSION SUICIDAL [None]
  - DRUG INEFFECTIVE [None]
  - FACIAL BONES FRACTURE [None]
  - HAEMOPTYSIS [None]
  - HEADACHE [None]
  - LOSS OF CONSCIOUSNESS [None]
  - NAUSEA [None]
  - PERIORBITAL HAEMATOMA [None]
  - ROAD TRAFFIC ACCIDENT [None]
  - SKIN LACERATION [None]
  - THINKING ABNORMAL [None]
